FAERS Safety Report 20875968 (Version 1)
Quarter: 2022Q2

REPORT INFORMATION
  Report Type: Spontaneous
  Country: CN (occurrence: None)
  Receive Date: 20220526
  Receipt Date: 20220526
  Transmission Date: 20220721
  Serious: Yes (Other)
  Sender: FDA-Public Use
  Company Number: CN-ROCHE-3102944

PATIENT
  Age: 58 Year
  Sex: Male

DRUGS (12)
  1. XELODA [Suspect]
     Active Substance: CAPECITABINE
     Indication: Colon cancer
     Dosage: FOR 6 CYCLES
     Route: 048
     Dates: start: 20170222
  2. XELODA [Suspect]
     Active Substance: CAPECITABINE
     Dosage: DF=TABLET, FROM DAY 1 TO DAY 14  FOR 3 CYCLES, ONE CYCLE WAS 3 WEEKS
     Route: 048
     Dates: start: 20211109, end: 20211223
  3. XELODA [Suspect]
     Active Substance: CAPECITABINE
     Dosage: DF=TABLET, FROM DAY 1 TO DAY 14  FOR 1 CYCLE
     Route: 048
     Dates: start: 20220118
  4. XELODA [Suspect]
     Active Substance: CAPECITABINE
     Dosage: FOR 2 CYCLES
     Route: 048
     Dates: start: 20220218
  5. AVASTIN [Suspect]
     Active Substance: BEVACIZUMAB
     Indication: Colon cancer
     Dosage: ON DAY 1 FOR 3 CYCLES, ONE CYCLE WAS 3 WEEKS
     Route: 065
     Dates: start: 20211109, end: 20211223
  6. OXALIPLATIN [Suspect]
     Active Substance: OXALIPLATIN
     Indication: Colon cancer
     Dosage: FOR 6 CYCLES
     Route: 065
     Dates: start: 20170222
  7. OXALIPLATIN [Suspect]
     Active Substance: OXALIPLATIN
     Dosage: ON DAY 1 FOR 3 CYCLES, ONE CYCLE WAS 3 WEEKS
     Route: 065
     Dates: start: 20211109, end: 20211223
  8. OXALIPLATIN [Suspect]
     Active Substance: OXALIPLATIN
     Dosage: FOR 2 CYCLES
     Route: 065
     Dates: start: 20220218
  9. IRINOTECAN [Concomitant]
     Active Substance: IRINOTECAN
     Indication: Colon cancer
     Dosage: FOR 4 CYCLES
     Dates: start: 20191210
  10. LEUCOVORIN CALCIUM [Concomitant]
     Active Substance: LEUCOVORIN CALCIUM
     Indication: Colon cancer
     Dosage: FOR 4 CYCLES
     Dates: start: 20191210
  11. FLUOROURACIL [Concomitant]
     Active Substance: FLUOROURACIL
     Indication: Colon cancer
     Dosage: FOR 4 CYCLES
     Dates: start: 20191210
  12. CETUXIMAB [Concomitant]
     Active Substance: CETUXIMAB
     Indication: Colon cancer
     Dosage: FOR 4 CYCLES
     Dates: start: 20191210

REACTIONS (7)
  - White blood cell count decreased [Unknown]
  - Platelet count decreased [Unknown]
  - Asthenia [Unknown]
  - Neurotoxicity [Unknown]
  - Gastrointestinal disorder [Unknown]
  - Nausea [Unknown]
  - Vomiting [Unknown]
